FAERS Safety Report 24446487 (Version 1)
Quarter: 2024Q4

REPORT INFORMATION
  Report Type: Spontaneous
  Country: BR (occurrence: BR)
  Receive Date: 20241016
  Receipt Date: 20241016
  Transmission Date: 20250114
  Serious: Yes (Other)
  Sender: UCB
  Company Number: BR-UCBSA-2024053312

PATIENT
  Age: 61 Year
  Sex: Female

DRUGS (11)
  1. VIMPAT [Suspect]
     Active Substance: LACOSAMIDE
     Indication: Epilepsy
     Dosage: 100 MILLIGRAM, 2X/DAY (BID)
     Dates: start: 2015
  2. VIMPAT [Suspect]
     Active Substance: LACOSAMIDE
     Indication: Off label use
     Dosage: 100 MG IN THE MORNING AND 150 MG IN THE EVENING
     Dates: start: 2015
  3. NIMESULIDE [Suspect]
     Active Substance: NIMESULIDE
     Indication: Product used for unknown indication
     Dosage: UNK
  4. LEVOTHYROXINE [Concomitant]
     Active Substance: LEVOTHYROXINE
     Indication: Product used for unknown indication
     Dosage: 88 MCG TO 75 MCG
  5. IBUPROFEN [Concomitant]
     Active Substance: IBUPROFEN
     Indication: COVID-19
     Dosage: UNK
  6. FOLIC ACID [Concomitant]
     Active Substance: FOLIC ACID
     Indication: Anaemia
     Dosage: 5 MILLIGRAM, SHE STARTED WITH 2 TABLETS AND DECREASED TO 1 TABLET
  7. IRON POLYMALTOSE [Concomitant]
     Active Substance: IRON POLYMALTOSE
     Indication: Anaemia
     Dosage: 100 MILLIGRAM, 2X/DAY (BID)
  8. CYANOCOBALAMIN [Concomitant]
     Active Substance: CYANOCOBALAMIN
     Indication: Anaemia
     Dosage: UNK, 1 TABLET 3 TIMES A WEEK
  9. LUMIGAN [Concomitant]
     Active Substance: BIMATOPROST
     Indication: Glaucoma
     Dosage: UNK
     Dates: start: 2017, end: 2022
  10. BIMATOPROST\TIMOLOL [Concomitant]
     Active Substance: BIMATOPROST\TIMOLOL
     Indication: Glaucoma
     Dosage: UNK, 1 DROP IN EACH EYE AT NIGHT
     Dates: start: 2022
  11. DORZAL [Concomitant]
     Indication: Glaucoma
     Dosage: UNK, APPLY 1 DROP IN EACH EYE EVERY 12 HOURS

REACTIONS (12)
  - Brain operation [Not Recovered/Not Resolved]
  - Vascular rupture [Not Recovered/Not Resolved]
  - Glaucoma [Not Recovered/Not Resolved]
  - COVID-19 [Not Recovered/Not Resolved]
  - Haematoma [Not Recovered/Not Resolved]
  - Anaemia [Not Recovered/Not Resolved]
  - Road traffic accident [Not Recovered/Not Resolved]
  - Dry eye [Not Recovered/Not Resolved]
  - Hypersensitivity [Not Recovered/Not Resolved]
  - Blood iron increased [Not Recovered/Not Resolved]
  - Off label use [Unknown]
  - Product availability issue [Unknown]

NARRATIVE: CASE EVENT DATE: 20170125
